FAERS Safety Report 26027675 (Version 3)
Quarter: 2025Q4

REPORT INFORMATION
  Report Type: Report from Study
  Country: US (occurrence: US)
  Receive Date: 20251111
  Receipt Date: 20251205
  Transmission Date: 20260118
  Serious: Yes (Other)
  Sender: JAZZ
  Company Number: US-JAZZ PHARMACEUTICALS-2025-US-025436

PATIENT
  Age: 58 Year
  Sex: Female

DRUGS (5)
  1. SODIUM OXYBATE [Suspect]
     Active Substance: SODIUM OXYBATE
     Indication: Narcolepsy
     Dosage: UNK
  2. SODIUM OXYBATE [Suspect]
     Active Substance: SODIUM OXYBATE
     Indication: Cataplexy
     Dosage: 2.5 GRAM, BID
  3. SODIUM OXYBATE [Suspect]
     Active Substance: SODIUM OXYBATE
     Dosage: 3 GRAM, BID
     Dates: start: 20250805, end: 20251104
  4. SODIUM OXYBATE [Suspect]
     Active Substance: SODIUM OXYBATE
     Dosage: 3.75 GRAM, BID
  5. NEUPRO [Concomitant]
     Active Substance: ROTIGOTINE
     Indication: Product used for unknown indication
     Dosage: 24 HOUR

REACTIONS (4)
  - Cataract [Unknown]
  - Disability [Unknown]
  - Neuralgia [Recovered/Resolved]
  - Intentional dose omission [Unknown]

NARRATIVE: CASE EVENT DATE: 20251016
